FAERS Safety Report 7864083-9 (Version None)
Quarter: 2011Q4

REPORT INFORMATION
  Report Type: 
  Country: None (occurrence: None)
  Receive Date: 20111028
  Receipt Date: 20111018
  Transmission Date: 20120403
  Serious: No
  Sender: FDA-Public Use
  Company Number: US-JNJFOC-20111009747

PATIENT
  Sex: Male
  Weight: 76.2 kg

DRUGS (4)
  1. DURAGESIC-100 [Suspect]
     Dosage: 150MCG/PATCH/100MCG+50MCG/1 IN 72 HOURS/TD
     Route: 062
     Dates: start: 20100101
  2. DURAGESIC-100 [Suspect]
     Indication: PAIN
     Route: 062
     Dates: start: 19980101
  3. DURAGESIC-100 [Suspect]
     Route: 062
  4. DURAGESIC-100 [Suspect]
     Dosage: 125MCG/PATCH/100MCG+25MCG/1 IN 72 HOURS/TD
     Route: 062
     Dates: end: 20100101

REACTIONS (5)
  - DRUG INEFFECTIVE [None]
  - ANXIETY [None]
  - DRUG PRESCRIBING ERROR [None]
  - INCORRECT DOSE ADMINISTERED [None]
  - NEURALGIA [None]
